FAERS Safety Report 9226742 (Version 1)
Quarter: 2013Q2

REPORT INFORMATION
  Report Type: Spontaneous
  Country: PT (occurrence: None)
  Receive Date: 20130410
  Receipt Date: 20130410
  Transmission Date: 20140414
  Serious: Yes (Other)
  Sender: FDA-Public Use
  Company Number: FK201301063

PATIENT
  Sex: 0

DRUGS (3)
  1. CEFTRIAXON [Suspect]
     Indication: PRODUCT USED FOR UNKNOWN INDICATION
  2. LOPINAVIR (LOPINAVIR) (LOPINAVIR) [Concomitant]
  3. RITONAVIR (RITONAVIR) (RITONAVIR) [Concomitant]

REACTIONS (1)
  - Alcohol intolerance [None]
